FAERS Safety Report 5918326-9 (Version None)
Quarter: 2008Q4

REPORT INFORMATION
  Report Type: 
  Country: None (occurrence: None)
  Receive Date: 20081014
  Receipt Date: 20081008
  Transmission Date: 20090506
  Serious: Yes (Other)
  Sender: FDA-Public Use
  Company Number: US-ALLERGAN-0812671US

PATIENT
  Sex: Female

DRUGS (5)
  1. BOTOX [Suspect]
     Indication: BLEPHAROSPASM
     Dosage: UNK, SINGLE
     Route: 030
     Dates: start: 20080925, end: 20080925
  2. ALLEGRA-D [Concomitant]
  3. ADVAIR DISKUS 100/50 [Concomitant]
     Dosage: 500
  4. SPIRIVA [Concomitant]
  5. LEXAPRO [Concomitant]
     Dosage: 10 MG, QD

REACTIONS (5)
  - DEPRESSION [None]
  - DIPLOPIA [None]
  - DIZZINESS [None]
  - EYELID PTOSIS [None]
  - VISION BLURRED [None]
